FAERS Safety Report 7440442-3 (Version None)
Quarter: 2011Q2

REPORT INFORMATION
  Report Type: 
  Country: None (occurrence: None)
  Receive Date: 20110427
  Receipt Date: 20110406
  Transmission Date: 20111010
  Serious: No
  Sender: FDA-Public Use
  Company Number: US-B.I. PHARMACEUTICALS,INC./RIDGEFIELD-2011-BP-10245BP

PATIENT
  Sex: Male

DRUGS (5)
  1. SPIRIVA [Suspect]
     Dosage: 36 MCG
     Route: 055
     Dates: start: 20110405, end: 20110405
  2. METOPROLOL [Concomitant]
     Indication: HYPERTENSION
  3. PRANDIN [Concomitant]
     Indication: DIABETES MELLITUS
  4. QUINAPRIL [Concomitant]
     Indication: HYPERTENSION
  5. SPIRIVA [Suspect]
     Indication: CHRONIC OBSTRUCTIVE PULMONARY DISEASE
     Dosage: 18 MCG
     Route: 055
     Dates: start: 20100101

REACTIONS (3)
  - SLEEP DISORDER [None]
  - FEELING HOT [None]
  - FEELING COLD [None]
